FAERS Safety Report 17746437 (Version 8)
Quarter: 2021Q3

REPORT INFORMATION
  Report Type: Report from Study
  Country: DE (occurrence: DE)
  Receive Date: 20200505
  Receipt Date: 20210824
  Transmission Date: 20211014
  Serious: Yes (Hospitalization, Other)
  Sender: FDA-Public Use
  Company Number: DE-SHIRE-DE202014985

PATIENT
  Age: 24 Year
  Sex: Male
  Weight: 54 kg

DRUGS (34)
  1. TEDUGLUTIDE [Suspect]
     Active Substance: TEDUGLUTIDE
     Indication: SHORT-BOWEL SYNDROME
     Dosage: 0.26 MILLILITER, 1X/DAY:QD
     Route: 058
  2. ZOLPIDEM [Concomitant]
     Active Substance: ZOLPIDEM TARTRATE
     Dosage: UNK
     Route: 065
  3. TEDUGLUTIDE [Suspect]
     Active Substance: TEDUGLUTIDE
     Dosage: 2.8 MILLIGRAM (0.05 MG/KG DAILY DOSE, 7 DOSES PER WEEK), OTHER
     Route: 065
  4. TEDUGLUTIDE [Suspect]
     Active Substance: TEDUGLUTIDE
     Dosage: 2.8 MILLIGRAM (0.05 MG/KG DAILY DOSE, 7 DOSES PER WEEK), OTHER
     Route: 065
  5. TEDUGLUTIDE [Suspect]
     Active Substance: TEDUGLUTIDE
     Dosage: 2.8 MILLIGRAM (0.05 MG/KG DAILY DOSE, 7 DOSES PER WEEK), OTHER
     Route: 065
  6. TEDUGLUTIDE [Suspect]
     Active Substance: TEDUGLUTIDE
     Dosage: 2.8 MILLIGRAM (0.05 MG/KG DAILY DOSE, 7 DOSES PER WEEK), OTHER
     Route: 065
  7. TEDUGLUTIDE [Suspect]
     Active Substance: TEDUGLUTIDE
     Dosage: 0.050 MILLIGRAM/KILOGRAM
     Route: 065
  8. TEDUGLUTIDE [Suspect]
     Active Substance: TEDUGLUTIDE
     Dosage: 0.050 MILLIGRAM/KILOGRAM
     Route: 065
  9. METAMIZOLE [Concomitant]
     Active Substance: METAMIZOLE
     Dosage: UNK
     Route: 042
  10. TEDUGLUTIDE [Suspect]
     Active Substance: TEDUGLUTIDE
     Indication: SHORT-BOWEL SYNDROME
     Dosage: 0.26 MILLILITER, 1X/DAY:QD
     Route: 058
  11. TEDUGLUTIDE [Suspect]
     Active Substance: TEDUGLUTIDE
     Dosage: 2.8 MILLIGRAM (0.05 MG/KG DAILY DOSE, 7 DOSES PER WEEK), OTHER
     Route: 065
  12. TEDUGLUTIDE [Suspect]
     Active Substance: TEDUGLUTIDE
     Dosage: 0.26 MILLILITER, 1X/DAY:QD
     Route: 058
  13. TEDUGLUTIDE [Suspect]
     Active Substance: TEDUGLUTIDE
     Dosage: 2.8 MILLIGRAM (0.05 MG/KG DAILY DOSE, 7 DOSES PER WEEK), OTHER
     Route: 065
  14. TEDUGLUTIDE [Suspect]
     Active Substance: TEDUGLUTIDE
     Dosage: 0.050 MILLIGRAM/KILOGRAM
     Route: 065
  15. TEDUGLUTIDE [Suspect]
     Active Substance: TEDUGLUTIDE
     Dosage: 0.050 MILLIGRAM/KILOGRAM
     Route: 065
  16. CETIRIZIN [Concomitant]
     Active Substance: CETIRIZINE HYDROCHLORIDE
     Indication: ANTIALLERGIC THERAPY
     Dosage: UNK, BID
     Route: 048
  17. TEDUGLUTIDE [Suspect]
     Active Substance: TEDUGLUTIDE
     Dosage: 0.26 MILLILITER, 1X/DAY:QD
     Route: 058
  18. TEDUGLUTIDE [Suspect]
     Active Substance: TEDUGLUTIDE
     Dosage: 0.050 MILLIGRAM/KILOGRAM
     Route: 065
  19. TEDUGLUTIDE [Suspect]
     Active Substance: TEDUGLUTIDE
     Indication: SHORT-BOWEL SYNDROME
     Dosage: 0.26 MILLILITER, 1X/DAY:QD
     Route: 058
  20. METAMIZOLE [Concomitant]
     Active Substance: METAMIZOLE
     Indication: ANALGESIC THERAPY
     Dosage: 40 GTT DROPS, PRN
     Route: 048
     Dates: start: 20200320
  21. TEDUGLUTIDE [Suspect]
     Active Substance: TEDUGLUTIDE
     Dosage: 2.8 MILLIGRAM (0.05 MG/KG DAILY DOSE, 7 DOSES PER WEEK), OTHER
     Route: 065
  22. TEDUGLUTIDE [Suspect]
     Active Substance: TEDUGLUTIDE
     Dosage: 2.8 MILLIGRAM (0.05 MG/KG DAILY DOSE, 7 DOSES PER WEEK), OTHER
     Route: 065
  23. TEDUGLUTIDE [Suspect]
     Active Substance: TEDUGLUTIDE
     Dosage: 0.050 MILLIGRAM/KILOGRAM
     Route: 065
  24. ZINC. [Concomitant]
     Active Substance: ZINC
     Indication: ZINC DEFICIENCY
     Dosage: 1 DOSAGE FORM, QD
     Route: 048
     Dates: start: 201912
  25. TEDUGLUTIDE [Suspect]
     Active Substance: TEDUGLUTIDE
     Dosage: 2.8 MILLIGRAM (0.05 MG/KG DAILY DOSE, 7 DOSES PER WEEK), OTHER
     Route: 065
  26. TEDUGLUTIDE [Suspect]
     Active Substance: TEDUGLUTIDE
     Dosage: 0.26 MILLILITER, 1X/DAY:QD
     Route: 058
  27. INFLIXIMAB [Concomitant]
     Active Substance: INFLIXIMAB
     Indication: CROHN^S DISEASE
     Dosage: 300 MILLIGRAM, Q8WEEKS
     Route: 042
     Dates: start: 202001
  28. TEDUGLUTIDE [Suspect]
     Active Substance: TEDUGLUTIDE
     Indication: SHORT-BOWEL SYNDROME
     Dosage: 0.26 MILLILITER, 1X/DAY:QD
     Route: 058
  29. TEDUGLUTIDE [Suspect]
     Active Substance: TEDUGLUTIDE
     Dosage: 2.8 MILLIGRAM (0.05 MG/KG DAILY DOSE, 7 DOSES PER WEEK), OTHER
     Route: 065
  30. TEDUGLUTIDE [Suspect]
     Active Substance: TEDUGLUTIDE
     Dosage: 2.8 MILLIGRAM (0.05 MG/KG DAILY DOSE, 7 DOSES PER WEEK), OTHER
     Route: 065
  31. TEDUGLUTIDE [Suspect]
     Active Substance: TEDUGLUTIDE
     Dosage: 2.8 MILLIGRAM (0.05 MG/KG DAILY DOSE, 7 DOSES PER WEEK), OTHER
     Route: 065
  32. TEDUGLUTIDE [Suspect]
     Active Substance: TEDUGLUTIDE
     Dosage: 0.26 MILLILITER, 1X/DAY:QD
     Route: 058
  33. TEDUGLUTIDE [Suspect]
     Active Substance: TEDUGLUTIDE
     Dosage: 0.050 MILLIGRAM/KILOGRAM
     Route: 065
  34. TEDUGLUTIDE [Suspect]
     Active Substance: TEDUGLUTIDE
     Dosage: 0.050 MILLIGRAM/KILOGRAM
     Route: 065

REACTIONS (22)
  - Device related infection [Not Recovered/Not Resolved]
  - Hepatosplenomegaly [Not Recovered/Not Resolved]
  - Chest pain [Recovered/Resolved]
  - Iron deficiency [Not Recovered/Not Resolved]
  - Arthralgia [Not Recovered/Not Resolved]
  - Disturbance in attention [Recovered/Resolved]
  - Catheter site pain [Recovered/Resolved]
  - Gastric polyps [Not Recovered/Not Resolved]
  - Fatigue [Recovered/Resolved]
  - Muscle spasms [Not Recovered/Not Resolved]
  - Mood altered [Recovered/Resolved]
  - Stoma site inflammation [Not Recovered/Not Resolved]
  - Cholecystitis [Recovered/Resolved]
  - Liver disorder [Not Recovered/Not Resolved]
  - Granuloma [Not Recovered/Not Resolved]
  - Splenomegaly [Unknown]
  - Breast pain [Recovered/Resolved]
  - Impaired healing [Not Recovered/Not Resolved]
  - Flank pain [Not Recovered/Not Resolved]
  - Headache [Recovered/Resolved]
  - Decreased appetite [Not Recovered/Not Resolved]
  - Abdominal pain [Not Recovered/Not Resolved]

NARRATIVE: CASE EVENT DATE: 202003
